FAERS Safety Report 4656251-4 (Version None)
Quarter: 2005Q2

REPORT INFORMATION
  Report Type: 
  Country: None (occurrence: None)
  Receive Date: 20050509
  Receipt Date: 20050315
  Transmission Date: 20051028
  Serious: No
  Sender: FDA-Public Use
  Company Number: US-GLAXOSMITHKLINE-A0549842A

PATIENT
  Age: 69 Year
  Sex: Female

DRUGS (7)
  1. AVANDAMET [Suspect]
     Dosage: 2 PER DAY
     Route: 048
  2. UNKNOWN MEDICATION [Concomitant]
     Route: 065
  3. ARIMIDEX [Concomitant]
  4. CARDIZEM [Concomitant]
     Route: 065
  5. GLIPIZIDE [Concomitant]
  6. ASPIRIN [Concomitant]
  7. INSULIN [Concomitant]

REACTIONS (2)
  - JOINT SWELLING [None]
  - WEIGHT INCREASED [None]
